FAERS Safety Report 14320072 (Version 1)
Quarter: 2017Q4

REPORT INFORMATION
  Report Type: Spontaneous
  Country: US (occurrence: US)
  Receive Date: 20171221
  Receipt Date: 20171221
  Transmission Date: 20180321
  Serious: No
  Sender: FDA-Public Use
  Company Number: None

PATIENT
  Age: 34 Year
  Sex: Female

DRUGS (1)
  1. GLATIRAMER 40MG MYLAN [Suspect]
     Active Substance: GLATIRAMER
     Indication: MULTIPLE SCLEROSIS
     Route: 058
     Dates: start: 20171128, end: 20171201

REACTIONS (5)
  - Product substitution issue [None]
  - Chest discomfort [None]
  - Nausea [None]
  - Headache [None]
  - Rash [None]

NARRATIVE: CASE EVENT DATE: 20171201
